FAERS Safety Report 6121253-8 (Version None)
Quarter: 2009Q1

REPORT INFORMATION
  Report Type: 
  Country: None (occurrence: None)
  Receive Date: 20090317
  Receipt Date: 20090309
  Transmission Date: 20090719
  Serious: Yes (Other)
  Sender: FDA-Public Use
  Company Number: US-ELI_LILLY_AND_COMPANY-US200903002211

PATIENT
  Sex: Female

DRUGS (5)
  1. HUMALOG [Suspect]
  2. LISINOPRIL [Concomitant]
  3. BUMEX [Concomitant]
  4. NOVOLOG [Concomitant]
  5. LANTUS [Concomitant]
     Dosage: UNK, EACH EVENING

REACTIONS (3)
  - BLINDNESS [None]
  - HYPERSENSITIVITY [None]
  - LOSS OF CONSCIOUSNESS [None]
